FAERS Safety Report 11176272 (Version 1)
Quarter: 2015Q2

REPORT INFORMATION
  Report Type: Report from Study
  Country: JP (occurrence: JP)
  Receive Date: 20150609
  Receipt Date: 20150609
  Transmission Date: 20150821
  Serious: Yes (Hospitalization)
  Sender: FDA-Public Use
  Company Number: JP-AMGEN-JPNNI2015056477

PATIENT
  Sex: Female
  Weight: 32 kg

DRUGS (11)
  1. ASPARA-CA [Concomitant]
     Active Substance: CALCIUM ASPARTATE
     Dosage: 3 DF/DAY
     Route: 048
     Dates: start: 20131224
  2. CARBOPLATIN. [Concomitant]
     Active Substance: CARBOPLATIN
     Dosage: UNK
     Route: 065
     Dates: start: 20101104, end: 20110322
  3. DENOSUMAB [Suspect]
     Active Substance: DENOSUMAB
     Indication: METASTASES TO BONE
     Dosage: 120 MG, 2013/12/24, 2014/1/21, 2/18, 3/18, 4/15, 5/13, 6/10
     Route: 058
     Dates: start: 20131224, end: 20140610
  4. TARCEVA [Concomitant]
     Active Substance: ERLOTINIB HYDROCHLORIDE
     Dosage: UNK
     Route: 065
     Dates: start: 20111019
  5. OXYCONTIN [Concomitant]
     Active Substance: OXYCODONE HYDROCHLORIDE
     Dosage: 50 MG/DAY
     Route: 048
     Dates: start: 20130820
  6. GASTER [Concomitant]
     Active Substance: FAMOTIDINE
     Dosage: 40 MG, QD
     Route: 065
     Dates: start: 20130820
  7. TENORMIN [Concomitant]
     Active Substance: ATENOLOL
     Dosage: 12.5 MG/DAY
     Route: 065
  8. MICARDIS [Concomitant]
     Active Substance: TELMISARTAN
     Dosage: 40 MG/DAY
     Route: 048
  9. ALFAROL [Concomitant]
     Active Substance: ALFACALCIDOL
     Dosage: 0.5 MUG, QD
     Route: 048
  10. HYPEN                              /00613801/ [Concomitant]
     Active Substance: ETODOLAC
     Dosage: 400 MG/DAY
     Route: 048
     Dates: start: 20130820
  11. PEMETREXED [Concomitant]
     Active Substance: PEMETREXED
     Dosage: UNK
     Route: 065
     Dates: start: 20101104, end: 20110913

REACTIONS (1)
  - White blood cell count decreased [Not Recovered/Not Resolved]

NARRATIVE: CASE EVENT DATE: 20140708
